FAERS Safety Report 9082532 (Version 1)
Quarter: 2013Q1

REPORT INFORMATION
  Report Type: Report from Study
  Country: US (occurrence: US)
  Receive Date: 20130131
  Receipt Date: 20130131
  Transmission Date: 20140127
  Serious: No
  Sender: FDA-Public Use
  Company Number: US-ABBOTT-12P-163-0991894-00

PATIENT
  Sex: Female
  Weight: 95.34 kg

DRUGS (8)
  1. HUMIRA PEN [Suspect]
     Indication: PSORIASIS
     Dates: start: 201205
  2. HUMIRA PEN [Suspect]
     Indication: PSORIATIC ARTHROPATHY
  3. DIAZIDE [Concomitant]
     Indication: PRODUCT USED FOR UNKNOWN INDICATION
  4. FLUOXETINE [Concomitant]
     Indication: PRODUCT USED FOR UNKNOWN INDICATION
  5. FOLIC ACID [Concomitant]
     Indication: VITAMIN SUPPLEMENTATION
  6. LYRICA [Concomitant]
     Indication: PRODUCT USED FOR UNKNOWN INDICATION
  7. NORCO [Concomitant]
     Indication: PRODUCT USED FOR UNKNOWN INDICATION
  8. TRAMADOL [Concomitant]
     Indication: PRODUCT USED FOR UNKNOWN INDICATION

REACTIONS (3)
  - Wrong technique in drug usage process [Recovered/Resolved]
  - Incorrect route of drug administration [Recovered/Resolved]
  - Hypoaesthesia [Not Recovered/Not Resolved]
